FAERS Safety Report 17289395 (Version 1)
Quarter: 2020Q1

REPORT INFORMATION
  Report Type: Other
  Country: US (occurrence: US)
  Receive Date: 20200120
  Receipt Date: 20200120
  Transmission Date: 20200409
  Serious: No
  Sender: FDA-Public Use
  Company Number: US-AMAG PHARMACEUTICALS, INC.-AMAG201905811

PATIENT
  Age: 36 Year
  Sex: Female
  Weight: 65.83 kg

DRUGS (1)
  1. MAKENA [Suspect]
     Active Substance: HYDROXYPROGESTERONE CAPROATE
     Indication: PREMATURE DELIVERY
     Route: 058
     Dates: start: 20191014

REACTIONS (6)
  - Vomiting [Unknown]
  - Injection site pain [Unknown]
  - Nausea [Unknown]
  - Presyncope [Unknown]
  - Pain in extremity [Unknown]
  - Injection site nodule [Not Recovered/Not Resolved]

NARRATIVE: CASE EVENT DATE: 20191014
